FAERS Safety Report 14984217 (Version 3)
Quarter: 2019Q1

REPORT INFORMATION
  Report Type: Report from Study
  Country: FR (occurrence: FR)
  Receive Date: 20180607
  Receipt Date: 20190129
  Transmission Date: 20190417
  Serious: Yes (Death, Other)
  Sender: FDA-Public Use
  Company Number: FR-JAZZ-2017-FR-015316

PATIENT

DRUGS (9)
  1. ISAVUCONAZOLE [Concomitant]
     Active Substance: ISAVUCONAZOLE
     Indication: INFECTION
     Dosage: 200 MG,QD
     Route: 042
     Dates: start: 20170713, end: 20170812
  2. ZOPICLONE [Concomitant]
     Active Substance: ZOPICLONE
     Indication: INSOMNIA
     Dosage: 7.5 MG, QD
     Route: 048
     Dates: start: 20170623, end: 20170727
  3. TRANXENE [Concomitant]
     Active Substance: CLORAZEPATE DIPOTASSIUM
     Indication: ANXIETY
     Dosage: 40 MG, QD
     Route: 042
     Dates: start: 20170624, end: 20170728
  4. NEFOPAM [Concomitant]
     Active Substance: NEFOPAM
     Indication: PAIN
     Dosage: 20 MG,QD
     Route: 042
     Dates: start: 20170704, end: 20170726
  5. CHOLURSO [Concomitant]
     Active Substance: URSODIOL
     Indication: PROPHYLAXIS
     Dosage: 1 G, QD
     Route: 048
     Dates: start: 20170522, end: 20170728
  6. DEFITELIO [Suspect]
     Active Substance: DEFIBROTIDE SODIUM
     Indication: PROPHYLAXIS
     Dosage: 20.5 MG/KG,QD
     Dates: start: 20170523, end: 20170614
  7. PRIMPERAN [Concomitant]
     Active Substance: METOCLOPRAMIDE HYDROCHLORIDE
     Indication: NAUSEA
     Dosage: 10 MG, QD
     Route: 042
     Dates: start: 20170523, end: 20170722
  8. METHYLPREDNISOLONE. [Concomitant]
     Active Substance: METHYLPREDNISOLONE
     Indication: GRAFT VERSUS HOST DISEASE
     Dosage: UNK
     Route: 042
     Dates: start: 20170621, end: 20170821
  9. TRAMADOL. [Concomitant]
     Active Substance: TRAMADOL
     Indication: PAIN
     Dosage: 50 MG, QD
     Route: 042
     Dates: start: 20170523, end: 20170802

REACTIONS (3)
  - Graft versus host disease in gastrointestinal tract [Fatal]
  - Thrombocytopenia [Recovered/Resolved]
  - Lower gastrointestinal haemorrhage [Recovered/Resolved]

NARRATIVE: CASE EVENT DATE: 20170612
